FAERS Safety Report 12564365 (Version 1)
Quarter: 2016Q3

REPORT INFORMATION
  Report Type: Spontaneous
  Country: US (occurrence: US)
  Receive Date: 20160718
  Receipt Date: 20160718
  Transmission Date: 20161109
  Serious: No
  Sender: FDA-Public Use
  Company Number: US-BRISTOL-MYERS SQUIBB COMPANY-BMS-2016-056096

PATIENT
  Sex: Male
  Weight: 95.24 kg

DRUGS (1)
  1. SPRYCEL [Suspect]
     Active Substance: DASATINIB
     Indication: CHRONIC MYELOID LEUKAEMIA
     Dosage: UNK
     Route: 065
     Dates: start: 20160630, end: 20160705

REACTIONS (7)
  - Pain [Unknown]
  - Gastric disorder [Unknown]
  - Chest discomfort [Unknown]
  - Headache [Unknown]
  - Vision blurred [Unknown]
  - Visual acuity reduced [Unknown]
  - Muscle spasms [Unknown]
